FAERS Safety Report 14884543 (Version 2)
Quarter: 2018Q3

REPORT INFORMATION
  Report Type: Spontaneous
  Country: US (occurrence: US)
  Receive Date: 20180511
  Receipt Date: 20180906
  Transmission Date: 20181010
  Serious: No
  Sender: FDA-Public Use
  Company Number: US-ACTELION-A-NJ2018-171583

PATIENT
  Age: 68 Year
  Sex: Female

DRUGS (3)
  1. VELETRI [Suspect]
     Active Substance: EPOPROSTENOL
     Indication: PULMONARY ARTERIAL HYPERTENSION
     Dosage: 5 NG/KG, PER MIN
     Route: 042
     Dates: start: 20180410
  2. TYVASO [Concomitant]
     Active Substance: TREPROSTINIL
     Dosage: 9 DF, QID
     Dates: start: 20180609
  3. VELETRI [Suspect]
     Active Substance: EPOPROSTENOL
     Dosage: 3 NG/KG, PER MIN
     Route: 042
     Dates: end: 20180614

REACTIONS (3)
  - Abdominal discomfort [Unknown]
  - Tinnitus [Not Recovered/Not Resolved]
  - Nasopharyngitis [Recovering/Resolving]
